FAERS Safety Report 7348478-8 (Version None)
Quarter: 2011Q1

REPORT INFORMATION
  Report Type: 
  Country: None (occurrence: None)
  Receive Date: 20110314
  Receipt Date: 20110303
  Transmission Date: 20110831
  Serious: Yes (Other)
  Sender: FDA-Public Use
  Company Number: NL-AMGEN-NLDSP2011012594

PATIENT
  Age: 64 Year
  Sex: Female

DRUGS (1)
  1. ENBREL [Suspect]
     Indication: RHEUMATOID ARTHRITIS
     Dosage: 50 MG, WEEKLY
     Dates: start: 20101209

REACTIONS (5)
  - DYSPNOEA [None]
  - RHEUMATOID ARTHRITIS [None]
  - PRURITUS [None]
  - COUGH [None]
  - ABDOMINAL DISCOMFORT [None]
